FAERS Safety Report 9725776 (Version 1)
Quarter: 2013Q4

REPORT INFORMATION
  Report Type: Spontaneous
  Country: US (occurrence: None)
  Receive Date: 20131118
  Receipt Date: 20131118
  Transmission Date: 20140711
  Serious: Yes (Other)
  Sender: FDA-Public Use
  Company Number: 2013038844

PATIENT
  Age: 56 Year
  Sex: Male

DRUGS (1)
  1. INTRAVENOUS IMMUNOGLOBULIN (IMMUNE GLOBULIN INTRAVENOUS (HUMAN)) [Suspect]
     Indication: GUILLAIN-BARRE SYNDROME

REACTIONS (1)
  - Meningitis aseptic [None]
